FAERS Safety Report 19056293 (Version 1)
Quarter: 2021Q1

REPORT INFORMATION
  Report Type: Spontaneous
  Country: CN (occurrence: CN)
  Receive Date: 20210325
  Receipt Date: 20210325
  Transmission Date: 20210420
  Serious: Yes (Other)
  Sender: FDA-Public Use
  Company Number: CN-PFIZER INC-2021276643

PATIENT
  Age: 64 Year
  Sex: Female
  Weight: 50 kg

DRUGS (2)
  1. CYCLOPHOSPHAMIDE. [Concomitant]
     Active Substance: CYCLOPHOSPHAMIDE
     Indication: BREAST CANCER FEMALE
     Dosage: 0.8 G, CYCLIC (ONCE DAILY)
     Route: 041
     Dates: start: 20201220, end: 20210311
  2. EPIRUBICIN HCL [Suspect]
     Active Substance: EPIRUBICIN HYDROCHLORIDE
     Indication: BREAST CANCER FEMALE
     Dosage: 130 MG, CYCLIC (ONCE DAILY)
     Route: 041
     Dates: start: 20201220, end: 20210311

REACTIONS (1)
  - Heart injury [Unknown]

NARRATIVE: CASE EVENT DATE: 20210221
